FAERS Safety Report 9180036 (Version 1)
Quarter: 2013Q1

REPORT INFORMATION
  Report Type: Report from Study
  Country: US (occurrence: US)
  Receive Date: 20130321
  Receipt Date: 20130321
  Transmission Date: 20140127
  Serious: Yes (Hospitalization, Disabling, Congenital Anomaly)
  Sender: FDA-Public Use
  Company Number: US-US-EMD SERONO, INC.-7199962

PATIENT
  Age: 0 Year
  Sex: Female

DRUGS (1)
  1. REBIF [Suspect]
     Indication: MULTIPLE SCLEROSIS
     Route: 064

REACTIONS (6)
  - Brain malformation [Not Recovered/Not Resolved]
  - Premature baby [Recovered/Resolved]
  - Ear malformation [Not Recovered/Not Resolved]
  - Tympanic membrane disorder [Not Recovered/Not Resolved]
  - Deafness [Not Recovered/Not Resolved]
  - Foetal exposure during pregnancy [Recovered/Resolved]
